FAERS Safety Report 10014272 (Version 2)
Quarter: 2014Q1

REPORT INFORMATION
  Report Type: Spontaneous
  Country: US (occurrence: US)
  Receive Date: 20140317
  Receipt Date: 20140326
  Transmission Date: 20141002
  Serious: No
  Sender: FDA-Public Use
  Company Number: US-BIOGENIDEC-2014BI015330

PATIENT
  Age: 69 Year
  Sex: Female

DRUGS (11)
  1. TECFIDERA [Suspect]
     Indication: MULTIPLE SCLEROSIS
     Route: 048
     Dates: start: 20130624
  2. AVONEX [Concomitant]
     Indication: MULTIPLE SCLEROSIS
     Route: 030
     Dates: start: 20110817
  3. CALCIUM 500+D [Concomitant]
  4. CEFUROXIME AXETIL [Concomitant]
  5. DOXYCYCLINE HYCLATE [Concomitant]
  6. ESTRIOL [Concomitant]
  7. FISH OIL [Concomitant]
  8. MAGNESIUM [Concomitant]
  9. TRAZADONE HCL [Concomitant]
  10. VITAMIN B12 [Concomitant]
  11. WELLBUTRIN [Concomitant]

REACTIONS (2)
  - Dysgeusia [Not Recovered/Not Resolved]
  - Nausea [Recovered/Resolved]
